FAERS Safety Report 5503739-X (Version None)
Quarter: 2007Q4

REPORT INFORMATION
  Report Type: 
  Country: None (occurrence: None)
  Receive Date: 20071030
  Receipt Date: 20071030
  Transmission Date: 20080405
  Serious: Yes (Life-Threatening)
  Sender: FDA-Public Use
  Company Number: None

PATIENT
  Sex: Male
  Weight: 95.2554 kg

DRUGS (1)
  1. BUPROPRION XL 300MG TEVA [Suspect]
     Dosage: 300MG DAILY PO
     Route: 048
     Dates: start: 20070601, end: 20071004

REACTIONS (5)
  - ANHEDONIA [None]
  - DECREASED INTEREST [None]
  - DEPRESSED MOOD [None]
  - DISTURBANCE IN ATTENTION [None]
  - FEELING OF DESPAIR [None]
